FAERS Safety Report 24567000 (Version 1)
Quarter: 2024Q4

REPORT INFORMATION
  Report Type: Spontaneous
  Country: FR (occurrence: FR)
  Receive Date: 20241030
  Receipt Date: 20241030
  Transmission Date: 20250115
  Serious: Yes (Other)
  Sender: NOVARTIS
  Company Number: FR-002147023-NVSC2024FR207863

PATIENT
  Age: 31 Year
  Sex: Female

DRUGS (2)
  1. COSENTYX [Suspect]
     Active Substance: SECUKINUMAB
     Indication: Spondylitis
     Dosage: 1 DOSAGE FORM, QMO (300MG/2ML) (1 INJECTION PER MONTH AFTER THE INITIATION SCHEME)
     Route: 058
     Dates: start: 202405, end: 202409
  2. AMITRIPTYLINE HYDROCHLORIDE [Concomitant]
     Active Substance: AMITRIPTYLINE HYDROCHLORIDE
     Indication: Pain
     Dosage: UNK, QD (5 TO 10 DROPS)
     Route: 048
     Dates: start: 202405

REACTIONS (1)
  - Parvovirus B19 infection [Recovered/Resolved with Sequelae]

NARRATIVE: CASE EVENT DATE: 20240401
